FAERS Safety Report 6963168-9 (Version None)
Quarter: 2010Q3

REPORT INFORMATION
  Report Type: 
  Country: None (occurrence: None)
  Receive Date: 20100902
  Receipt Date: 20100823
  Transmission Date: 20110219
  Serious: No
  Sender: FDA-Public Use
  Company Number: US-ROXANE LABORATORIES, INC.-2010-RO-01178RO

PATIENT
  Sex: Female

DRUGS (2)
  1. METHADONE HCL [Suspect]
     Indication: ABDOMINAL PAIN
     Dosage: 60 MG
     Route: 048
     Dates: start: 20100601
  2. PERCOCET [Concomitant]

REACTIONS (1)
  - HYPERHIDROSIS [None]
